FAERS Safety Report 20176670 (Version 1)
Quarter: 2021Q4

REPORT INFORMATION
  Report Type: Spontaneous
  Country: US (occurrence: None)
  Receive Date: 20211210
  Receipt Date: 20211210
  Transmission Date: 20220303
  Serious: No
  Sender: FDA-Public Use
  Company Number: None

PATIENT
  Age: 62 Year
  Sex: Male

DRUGS (1)
  1. EDETATE DISODIUM [Suspect]
     Active Substance: EDETATE DISODIUM
     Dosage: FREQUENCY : ONCE;?

REACTIONS (5)
  - Infusion related reaction [None]
  - Pain in extremity [None]
  - Vascular pain [None]
  - Chest pain [None]
  - Hypertension [None]

NARRATIVE: CASE EVENT DATE: 20210922
